FAERS Safety Report 12858665 (Version 2)
Quarter: 2016Q4

REPORT INFORMATION
  Report Type: Report from Study
  Country: EC (occurrence: EC)
  Receive Date: 20161018
  Receipt Date: 20161123
  Transmission Date: 20170207
  Serious: Yes (Death, Life-Threatening, Hospitalization, Disabling, Other)
  Sender: FDA-Public Use
  Company Number: EC-BAYER-2016-196242

PATIENT
  Age: 76 Year
  Sex: Female

DRUGS (1)
  1. NEXAVAR [Suspect]
     Active Substance: SORAFENIB
     Indication: HEPATOCELLULAR CARCINOMA
     Dosage: 600 MG, QD
     Route: 048
     Dates: start: 20160607

REACTIONS (11)
  - Myocardial infarction [Fatal]
  - Diabetic coma [None]
  - Blood blister [Recovered/Resolved]
  - Fluid retention [None]
  - Oedema peripheral [Not Recovered/Not Resolved]
  - Decubitus ulcer [Recovering/Resolving]
  - Expired product administered [Not Recovered/Not Resolved]
  - Hypotension [None]
  - Blister [Recovered/Resolved]
  - Peripheral swelling [Not Recovered/Not Resolved]
  - Limb discomfort [Not Recovered/Not Resolved]

NARRATIVE: CASE EVENT DATE: 20160607
